FAERS Safety Report 19442836 (Version 1)
Quarter: 2021Q2

REPORT INFORMATION
  Report Type: Spontaneous
  Country: US (occurrence: US)
  Receive Date: 20210619
  Receipt Date: 20210619
  Transmission Date: 20210717
  Serious: Yes (Hospitalization)
  Sender: FDA-Public Use
  Company Number: None

PATIENT
  Age: 65 Year
  Sex: Female
  Weight: 88.65 kg

DRUGS (5)
  1. HYDROCHLOROTHIAZIDE. [Concomitant]
     Active Substance: HYDROCHLOROTHIAZIDE
  2. MULTIVITAMIN [Concomitant]
     Active Substance: VITAMINS
  3. LOSARTEN [Concomitant]
     Active Substance: LOSARTAN
  4. PLENVU [Suspect]
     Active Substance: ASCORBIC ACID\POLYETHYLENE GLYCOL 3350\POTASSIUM CHLORIDE\SODIUM ASCORBATE\SODIUM CHLORIDE\SODIUM SULFATE
     Indication: BOWEL PREPARATION
     Dosage: ?          OTHER FREQUENCY:1ST AND 2ND DOSE;?
     Route: 048
     Dates: start: 20210613, end: 20210613
  5. ESTRADIOL. [Concomitant]
     Active Substance: ESTRADIOL

REACTIONS (9)
  - Dizziness [None]
  - Asthenia [None]
  - Flushing [None]
  - Diarrhoea [None]
  - White blood cell count increased [None]
  - Incoherent [None]
  - Chills [None]
  - Abdominal pain upper [None]
  - Blood pressure decreased [None]

NARRATIVE: CASE EVENT DATE: 20210613
